FAERS Safety Report 5509877-X (Version None)
Quarter: 2007Q4

REPORT INFORMATION
  Report Type: 
  Country: None (occurrence: None)
  Receive Date: 20071106
  Receipt Date: 20071025
  Transmission Date: 20080405
  Serious: Yes (Life-Threatening)
  Sender: FDA-Public Use
  Company Number: CHNY2007BR02907

PATIENT
  Age: 55 Year
  Sex: Female
  Weight: 57 kg

DRUGS (1)
  1. CALSAN (NCH)(CALCIUM CARBONATE) TABLET [Suspect]
     Indication: MINERAL SUPPLEMENTATION
     Dosage: 5 0% OF THE TAB, ORAL
     Route: 048
     Dates: start: 20070810

REACTIONS (5)
  - ABDOMINAL PAIN [None]
  - ASTHENIA [None]
  - DIARRHOEA [None]
  - FEELING ABNORMAL [None]
  - VOMITING [None]
